FAERS Safety Report 5834448-5 (Version None)
Quarter: 2008Q3

REPORT INFORMATION
  Report Type: 
  Country: None (occurrence: None)
  Receive Date: 20080805
  Receipt Date: 20080731
  Transmission Date: 20090109
  Serious: Yes (Death)
  Sender: FDA-Public Use
  Company Number: GB-BOEHRINGER INGELHEIM GMBH, GERMANY-2008-DE-04521GD

PATIENT
  Sex: Female

DRUGS (8)
  1. VIRAMUNE [Suspect]
     Indication: HUMAN IMMUNODEFICIENCY VIRUS TRANSMISSION
  2. VIRAMUNE [Suspect]
     Indication: PROPHYLAXIS
  3. ZIDOVUDINE [Suspect]
     Indication: HUMAN IMMUNODEFICIENCY VIRUS TRANSMISSION
  4. ZIDOVUDINE [Suspect]
     Indication: PROPHYLAXIS
  5. LAMIVUDINE [Suspect]
     Indication: HUMAN IMMUNODEFICIENCY VIRUS TRANSMISSION
  6. LAMIVUDINE [Suspect]
     Indication: PROPHYLAXIS
  7. ACYCLOVIR [Suspect]
     Indication: HERPES VIRUS INFECTION
  8. HEPATITIS B VACCINE [Suspect]
     Indication: HEPATITIS B IMMUNISATION

REACTIONS (7)
  - ACIDOSIS [None]
  - CONGENITAL HERPES SIMPLEX INFECTION [None]
  - CONVULSION [None]
  - DISSEMINATED INTRAVASCULAR COAGULATION [None]
  - LIVER FUNCTION TEST ABNORMAL [None]
  - MALAISE [None]
  - PYREXIA [None]
